FAERS Safety Report 5660095-4 (Version None)
Quarter: 2008Q1

REPORT INFORMATION
  Report Type: 
  Country: None (occurrence: None)
  Receive Date: 20080311
  Receipt Date: 20070917
  Transmission Date: 20080703
  Serious: No
  Sender: FDA-Public Use
  Company Number: US-BAYER-200713015BCC

PATIENT
  Age: 72 Year
  Sex: Female
  Weight: 66 kg

DRUGS (2)
  1. ALEVE (CAPLET) [Suspect]
     Indication: DRUG USE FOR UNKNOWN INDICATION
     Dosage: TOTAL DAILY DOSE: 1320 MG  UNIT DOSE: 220 MG
     Route: 048
     Dates: start: 20070916
  2. LIPITOR [Concomitant]

REACTIONS (1)
  - NO ADVERSE EVENT [None]
